FAERS Safety Report 20186422 (Version 1)
Quarter: 2021Q4

REPORT INFORMATION
  Report Type: Spontaneous
  Country: US (occurrence: US)
  Receive Date: 20211215
  Receipt Date: 20211215
  Transmission Date: 20220303
  Serious: No
  Sender: FDA-Public Use
  Company Number: US-RECKITT BENCKISER HEALTHCARE INT LIMITED-RB-95307-2021

PATIENT
  Age: 4 Year
  Sex: Male

DRUGS (1)
  1. DELSYM [Suspect]
     Active Substance: DEXTROMETHORPHAN
     Indication: Cough
     Dosage: TOOK 1/2 TABLESPOON, QD (BEFORE BED)
     Route: 065

REACTIONS (6)
  - Mydriasis [Unknown]
  - Energy increased [Unknown]
  - Euphoric mood [Unknown]
  - Eye disorder [Unknown]
  - Product administered to patient of inappropriate age [Unknown]
  - Drug ineffective [Recovered/Resolved]
